FAERS Safety Report 17267658 (Version 1)
Quarter: 2020Q1

REPORT INFORMATION
  Report Type: Spontaneous
  Country: US (occurrence: US)
  Receive Date: 20200114
  Receipt Date: 20200114
  Transmission Date: 20200409
  Serious: No
  Sender: FDA-Public Use
  Company Number: US-PFIZER INC-2020014387

PATIENT
  Age: 68 Year
  Sex: Female

DRUGS (1)
  1. GEODON [Suspect]
     Active Substance: ZIPRASIDONE HYDROCHLORIDE\ZIPRASIDONE MESYLATE
     Indication: DEPRESSION
     Dosage: UNK

REACTIONS (5)
  - Product use in unapproved indication [Unknown]
  - Akathisia [Unknown]
  - Off label use [Unknown]
  - Restlessness [Unknown]
  - Incorrect dose administered [Unknown]
